FAERS Safety Report 20346564 (Version 1)
Quarter: 2022Q1

REPORT INFORMATION
  Report Type: Spontaneous
  Country: FR (occurrence: None)
  Receive Date: 20220118
  Receipt Date: 20220118
  Transmission Date: 20220423
  Serious: Yes (Life-Threatening)
  Sender: FDA-Public Use
  Company Number: None

PATIENT
  Age: 61 Year
  Sex: Male

DRUGS (4)
  1. PROPOFOL [Suspect]
     Active Substance: PROPOFOL
     Indication: Induction of anaesthesia
     Dosage: UNK
     Route: 042
     Dates: start: 20211118, end: 20211118
  2. ALFENTANIL HYDROCHLORIDE [Suspect]
     Active Substance: ALFENTANIL HYDROCHLORIDE
     Indication: General anaesthesia
     Dosage: UNK
     Route: 042
     Dates: start: 20211118, end: 20211118
  3. KETAMINE [Suspect]
     Active Substance: KETAMINE
     Indication: General anaesthesia
     Route: 042
     Dates: start: 20211118, end: 20211118
  4. SUCCINYLCHOLINE CHLORIDE [Suspect]
     Active Substance: SUCCINYLCHOLINE CHLORIDE
     Indication: General anaesthesia
     Dosage: 100MG
     Route: 042
     Dates: start: 20211118, end: 20211118

REACTIONS (1)
  - Anaphylactic shock [Recovered/Resolved]

NARRATIVE: CASE EVENT DATE: 20211118
